FAERS Safety Report 23477940 (Version 1)
Quarter: 2024Q1

REPORT INFORMATION
  Report Type: Spontaneous
  Country: DE (occurrence: IL)
  Receive Date: 20240204
  Receipt Date: 20240204
  Transmission Date: 20240410
  Serious: Yes (Disabling, Other)
  Sender: FDA-Public Use
  Company Number: DE-Merck Healthcare KGaA-2024005099

PATIENT
  Age: 7 Decade
  Sex: Female

DRUGS (1)
  1. EUTHYROX [Suspect]
     Active Substance: LEVOTHYROXINE SODIUM
     Indication: Product used for unknown indication
     Dosage: OLD EUTHYROX FORMULATION

REACTIONS (3)
  - Brain neoplasm [Unknown]
  - Speech disorder [Unknown]
  - Gait disturbance [Unknown]
